FAERS Safety Report 7658627-X (Version None)
Quarter: 2011Q3

REPORT INFORMATION
  Report Type: 
  Country: None (occurrence: None)
  Receive Date: 20110805
  Receipt Date: 20110801
  Transmission Date: 20111222
  Serious: Yes (Hospitalization)
  Sender: FDA-Public Use
  Company Number: FR-BRISTOL-MYERS SQUIBB COMPANY-15944283

PATIENT
  Age: 46 Year
  Sex: Male

DRUGS (9)
  1. NORVIR [Suspect]
     Indication: HIV INFECTION
     Route: 048
     Dates: start: 20100114
  2. CODOLIPRANE [Concomitant]
  3. VOLTAREN [Concomitant]
     Dosage: VOLTARENE LP 75
  4. ABACAVIR SULFATE AND LAMIVUDINE [Suspect]
     Indication: HIV INFECTION
     Route: 048
     Dates: start: 20100114
  5. REYATAZ [Suspect]
     Indication: HIV INFECTION
     Dates: start: 20100114
  6. LEDERFOLINE [Concomitant]
  7. VITAMIN B-12 [Concomitant]
     Dosage: 1DF:100MICROGRAM/ML
  8. UVEDOSE [Concomitant]
  9. LOPERAMIDE HCL [Concomitant]

REACTIONS (2)
  - ESCHERICHIA URINARY TRACT INFECTION [None]
  - NEPHROLITHIASIS [None]
